FAERS Safety Report 20022783 (Version 1)
Quarter: 2021Q4

REPORT INFORMATION
  Report Type: Spontaneous
  Country: US (occurrence: None)
  Receive Date: 20211102
  Receipt Date: 20211102
  Transmission Date: 20220303
  Serious: Yes (Hospitalization, Other)
  Sender: FDA-Public Use
  Company Number: US-MLMSERVICE-20211013-3161687-1

PATIENT
  Age: 48 Year
  Sex: Male

DRUGS (1)
  1. PREDNISONE [Suspect]
     Active Substance: PREDNISONE
     Indication: Organising pneumonia
     Dosage: UNKNOWN; MODERATE DOSE
     Route: 065

REACTIONS (4)
  - Diabetes mellitus inadequate control [Recovered/Resolved]
  - Pneumothorax [Recovered/Resolved]
  - Coccidioidomycosis [Recovered/Resolved]
  - Pneumonia necrotising [Recovered/Resolved]
